FAERS Safety Report 7415933-1 (Version None)
Quarter: 2011Q2

REPORT INFORMATION
  Report Type: 
  Country: None (occurrence: None)
  Receive Date: 20110414
  Receipt Date: 20110403
  Transmission Date: 20111010
  Serious: Yes (Death)
  Sender: FDA-Public Use
  Company Number: LB-GENENTECH-316350

PATIENT
  Sex: Male

DRUGS (1)
  1. MABTHERA [Suspect]
     Indication: ANTIPHOSPHOLIPID SYNDROME
     Dosage: 1 G, UNK
     Route: 042
     Dates: start: 20110301, end: 20110301

REACTIONS (1)
  - HAEMORRHAGE [None]
